FAERS Safety Report 20496378 (Version 1)
Quarter: 2022Q1

REPORT INFORMATION
  Report Type: Spontaneous
  Country: US (occurrence: US)
  Receive Date: 20220221
  Receipt Date: 20220221
  Transmission Date: 20220423
  Serious: No
  Sender: FDA-Public Use
  Company Number: US-TAKEDA-2022TUS011046

PATIENT
  Sex: Female
  Weight: 59 kg

DRUGS (5)
  1. MOTEGRITY [Suspect]
     Active Substance: PRUCALOPRIDE SUCCINATE
     Indication: Product used for unknown indication
     Dosage: 2 MILLIGRAM, QD
     Route: 065
  2. DEXILANT [Suspect]
     Active Substance: DEXLANSOPRAZOLE
     Indication: Crohn^s disease
     Dosage: 60 MILLIGRAM
     Route: 065
  3. DULCOLAX NOS [Concomitant]
     Active Substance: BISACODYL OR DOCUSATE SODIUM
     Indication: Crohn^s disease
     Dosage: UNK
     Route: 065
  4. MELATONIN [Concomitant]
     Active Substance: MELATONIN
     Dosage: UNK
     Route: 065
  5. PREDNISONE [Concomitant]
     Active Substance: PREDNISONE
     Indication: Lung disorder
     Dosage: 8 MILLIGRAM
     Route: 065

REACTIONS (4)
  - Oesophageal disorder [Unknown]
  - Complication associated with device [Not Recovered/Not Resolved]
  - Gait disturbance [Unknown]
  - Fatigue [Unknown]
